FAERS Safety Report 9164010 (Version 1)
Quarter: 2013Q1

REPORT INFORMATION
  Report Type: Spontaneous
  Country: US (occurrence: US)
  Receive Date: 20130314
  Receipt Date: 20130314
  Transmission Date: 20140127
  Serious: Yes (Hospitalization, Other)
  Sender: FDA-Public Use
  Company Number: PHHY2013US023705

PATIENT
  Age: 64 Year
  Sex: Female

DRUGS (1)
  1. METOPROLOL [Suspect]

REACTIONS (3)
  - Coronary artery disease [Recovered/Resolved]
  - Angina pectoris [Recovered/Resolved]
  - Chest pain [Recovered/Resolved]
